FAERS Safety Report 6440313-5 (Version None)
Quarter: 2009Q4

REPORT INFORMATION
  Report Type: 
  Country: None (occurrence: None)
  Receive Date: 20091113
  Receipt Date: 20091113
  Transmission Date: 20100525
  Serious: Yes (Other)
  Sender: FDA-Public Use
  Company Number: US-PFIZER INC-2009237757

PATIENT
  Sex: Female
  Weight: 48.073 kg

DRUGS (2)
  1. DILANTIN [Suspect]
     Indication: CONVULSION
     Dosage: 300 MG, 1X/DAY
     Route: 048
  2. ALBUTEROL [Concomitant]
     Dosage: 5 MG, AS NEEDED
     Route: 048

REACTIONS (3)
  - ANTICONVULSANT DRUG LEVEL INCREASED [None]
  - ROAD TRAFFIC ACCIDENT [None]
  - SOMNOLENCE [None]
